FAERS Safety Report 4924287-1 (Version None)
Quarter: 2006Q1

REPORT INFORMATION
  Report Type: 
  Country: None (occurrence: None)
  Receive Date: 20060227
  Receipt Date: 20060124
  Transmission Date: 20060701
  Serious: Yes (Death)
  Sender: FDA-Public Use
  Company Number: US-BRISTOL-MYERS SQUIBB COMPANY-13258785

PATIENT
  Age: 42 Year
  Sex: Male

DRUGS (5)
  1. ABILIFY [Suspect]
     Indication: MOOD ALTERED
     Route: 048
     Dates: start: 20050422, end: 20051108
  2. KLONOPIN [Concomitant]
     Dates: start: 20051003, end: 20051108
  3. REMERON [Concomitant]
     Dates: start: 20050923, end: 20051108
  4. CYMBALTA [Concomitant]
     Dates: start: 20050802, end: 20051108
  5. LAMICTAL [Concomitant]
     Dates: start: 20050608, end: 20051108

REACTIONS (1)
  - DEATH [None]
